FAERS Safety Report 25150229 (Version 2)
Quarter: 2025Q3

REPORT INFORMATION
  Report Type: Spontaneous
  Country: US (occurrence: US)
  Receive Date: 20250402
  Receipt Date: 20250813
  Transmission Date: 20251021
  Serious: No
  Sender: DAIICHI
  Company Number: US-DAIICHI SANKYO, INC.-DS-2025-130995-USAA

PATIENT
  Sex: Male

DRUGS (2)
  1. DATROWAY [Suspect]
     Active Substance: DATOPOTAMAB DERUXTECAN-DLNK
     Indication: Pancreatic carcinoma
     Dosage: INJECT 456MG INTRAVEN OUSLY EVERY 21 DAYS
     Route: 042
     Dates: start: 20250305, end: 20250305
  2. DATROWAY [Suspect]
     Active Substance: DATOPOTAMAB DERUXTECAN-DLNK
     Dosage: INJECT 456MG INTRAVEN OUSLY EVERY 21 DAYS
     Route: 042
     Dates: start: 20250307, end: 20250307

REACTIONS (1)
  - Weight decreased [Not Recovered/Not Resolved]
